FAERS Safety Report 19729491 (Version 2)
Quarter: 2021Q3

REPORT INFORMATION
  Report Type: Report from Study
  Country: None (occurrence: US)
  Receive Date: 20210821
  Receipt Date: 20210920
  Transmission Date: 20211014
  Serious: Yes (Other)
  Sender: FDA-Public Use
  Company Number: US-ABBVIE-21K-163-4043900-00

PATIENT
  Age: 71 Year
  Sex: Female
  Weight: 86.71 kg

DRUGS (7)
  1. RINVOQ [Suspect]
     Active Substance: UPADACITINIB
     Indication: RHEUMATOID ARTHRITIS
  2. LOSARTAN. [Concomitant]
     Active Substance: LOSARTAN
     Indication: HYPERTENSION
  3. RINVOQ [Suspect]
     Active Substance: UPADACITINIB
     Indication: RHEUMATOID ARTHRITIS
     Route: 048
     Dates: start: 202103
  4. AMLODIPINE [Concomitant]
     Active Substance: AMLODIPINE BESYLATE
     Indication: HYPERTENSION
  5. METOPROLOL. [Concomitant]
     Active Substance: METOPROLOL
     Indication: HYPERTENSION
  6. MODERNA COVID?19 VACCINE [Concomitant]
     Active Substance: CX-024414
     Indication: COVID-19 IMMUNISATION
     Route: 030
     Dates: start: 20210311, end: 20210311
  7. MODERNA COVID?19 VACCINE [Concomitant]
     Active Substance: CX-024414
     Route: 030
     Dates: start: 20210408, end: 20210408

REACTIONS (1)
  - Cataract [Not Recovered/Not Resolved]

NARRATIVE: CASE EVENT DATE: 20210608
